FAERS Safety Report 5673196-1 (Version None)
Quarter: 2008Q1

REPORT INFORMATION
  Report Type: 
  Country: None (occurrence: None)
  Receive Date: 20080319
  Receipt Date: 20080310
  Transmission Date: 20080703
  Serious: Yes (Other)
  Sender: FDA-Public Use
  Company Number: US-JNJFOC-20080303085

PATIENT
  Sex: Female

DRUGS (2)
  1. SIMPLY SLEEP NIGHTTIME [Suspect]
     Dosage: 450 MG- 500 MG PER DAY
  2. SIMPLY SLEEP NIGHTTIME [Suspect]
     Indication: INSOMNIA

REACTIONS (5)
  - DEPENDENCE [None]
  - DRUG EFFECT DECREASED [None]
  - INCORRECT DRUG ADMINISTRATION DURATION [None]
  - INSOMNIA [None]
  - INTENTIONAL OVERDOSE [None]
